FAERS Safety Report 5424776-X (Version None)
Quarter: 2007Q3

REPORT INFORMATION
  Report Type: 
  Country: None (occurrence: None)
  Receive Date: 20070824
  Receipt Date: 20070813
  Transmission Date: 20080115
  Serious: Yes (Other)
  Sender: FDA-Public Use
  Company Number: IT-NOVOPROD-266607

PATIENT
  Age: 36 Year
  Sex: Female

DRUGS (2)
  1. LEVEMIR [Suspect]
     Dosage: .31 IU/KG, QD
     Route: 058
  2. NOVOLOG MIX 70/30 [Suspect]
     Indication: DIABETES MELLITUS
     Dosage: .55 IU/KG, QD
     Route: 058

REACTIONS (2)
  - PLACENTAL DISORDER [None]
  - PREGNANCY [None]
